FAERS Safety Report 21830782 (Version 1)
Quarter: 2023Q1

REPORT INFORMATION
  Report Type: Spontaneous
  Country: CN (occurrence: CN)
  Receive Date: 20230106
  Receipt Date: 20230106
  Transmission Date: 20230418
  Serious: Yes (Hospitalization, Other)
  Sender: FDA-Public Use
  Company Number: CN-PFIZER INC-PV202300001997

PATIENT
  Age: 80 Year
  Sex: Female
  Weight: 80 kg

DRUGS (2)
  1. AZITHROMYCIN [Suspect]
     Active Substance: AZITHROMYCIN
     Indication: Upper respiratory tract infection
     Dosage: 0.25 G, 1X/DAY
     Route: 048
     Dates: start: 20221218, end: 20221219
  2. ACETAMINOPHEN\AMANTADINE\CHLORPHENIRAMINE [Suspect]
     Active Substance: ACETAMINOPHEN\AMANTADINE\CHLORPHENIRAMINE
     Indication: Upper respiratory tract infection
     Dosage: 1 DF, 2X/DAY
     Route: 048
     Dates: start: 20221218, end: 20221219

REACTIONS (10)
  - Flushing [Recovering/Resolving]
  - Rash maculo-papular [Recovering/Resolving]
  - Pruritus [Recovering/Resolving]
  - Dermatitis allergic [Recovering/Resolving]
  - Burning sensation [Recovering/Resolving]
  - Formication [Recovering/Resolving]
  - Hypoaesthesia [Recovering/Resolving]
  - Dysaesthesia [Recovering/Resolving]
  - Drug hypersensitivity [Recovering/Resolving]
  - Off label use [Unknown]

NARRATIVE: CASE EVENT DATE: 20221218
